FAERS Safety Report 21487646 (Version 1)
Quarter: 2022Q4

REPORT INFORMATION
  Report Type: Report from Study
  Country: US (occurrence: US)
  Receive Date: 20221020
  Receipt Date: 20221020
  Transmission Date: 20230113
  Serious: Yes (Hospitalization, Other)
  Sender: FDA-Public Use
  Company Number: US-BoehringerIngelheim-2021-BI-145628

PATIENT
  Age: 80 Year
  Sex: Male

DRUGS (1)
  1. OFEV [Suspect]
     Active Substance: NINTEDANIB
     Indication: Idiopathic pulmonary fibrosis
     Dosage: ADDITIONAL LOT NO 10359, 105095, 103705,
     Route: 048
     Dates: start: 20210513

REACTIONS (20)
  - Infection [Unknown]
  - Transient ischaemic attack [Unknown]
  - Oxygen saturation decreased [Recovering/Resolving]
  - Weight decreased [Unknown]
  - Abdominal distension [Unknown]
  - Diarrhoea [Recovered/Resolved]
  - COVID-19 [Recovered/Resolved]
  - Abdominal discomfort [Unknown]
  - Diarrhoea haemorrhagic [Recovered/Resolved]
  - Asthenia [Unknown]
  - Decreased appetite [Unknown]
  - Respiratory disorder [Unknown]
  - Fatigue [Unknown]
  - Dyspnoea [Unknown]
  - Cough [Unknown]
  - Dysphonia [Unknown]
  - Asthenia [Unknown]
  - Dehydration [Unknown]
  - Feeding disorder [Unknown]
  - Cough [Unknown]

NARRATIVE: CASE EVENT DATE: 20210501
